FAERS Safety Report 8850805 (Version 1)
Quarter: 2012Q4

REPORT INFORMATION
  Report Type: 
  Country: US (occurrence: US)
  Receive Date: 20121019
  Receipt Date: 20121019
  Transmission Date: 20130627
  Serious: No
  Sender: FDA-Public Use
  Company Number: US-PFIZER INC-2012259650

PATIENT

DRUGS (1)
  1. PRISTIQ [Suspect]

REACTIONS (2)
  - Headache [Unknown]
  - Drug withdrawal syndrome [Unknown]
